FAERS Safety Report 11214257 (Version 1)
Quarter: 2015Q2

REPORT INFORMATION
  Report Type: Spontaneous
  Country: ES (occurrence: ES)
  Receive Date: 20150624
  Receipt Date: 20150624
  Transmission Date: 20150821
  Serious: Yes (Other)
  Sender: FDA-Public Use
  Company Number: ES-ROCHE-1597311

PATIENT
  Age: 44 Year
  Sex: Female

DRUGS (1)
  1. XOLAIR [Suspect]
     Active Substance: OMALIZUMAB
     Indication: URTICARIA CHRONIC
     Dosage: 150 MG/ML SOLUTION IN SYRINGE, 1 DF (1 SYRINGE)
     Route: 058
     Dates: start: 20150604, end: 20150604

REACTIONS (6)
  - Speech disorder [Recovering/Resolving]
  - Bradyphrenia [Recovering/Resolving]
  - Dizziness [Recovering/Resolving]
  - Lip swelling [Recovering/Resolving]
  - Vision blurred [Recovering/Resolving]
  - Pruritus [Recovering/Resolving]
